FAERS Safety Report 4972276-3 (Version None)
Quarter: 2006Q1

REPORT INFORMATION
  Report Type: 
  Country: None (occurrence: None)
  Receive Date: 20060213
  Receipt Date: 20051017
  Transmission Date: 20060701
  Serious: No
  Sender: FDA-Public Use
  Company Number: 012008

PATIENT
  Age: 48 Year
  Sex: Male

DRUGS (9)
  1. PRIALT [Suspect]
     Indication: PAIN
     Dosage: INTRATHECAL ; 0.3 UG, ONCE/HOUR, INTRATHECAL
     Route: 037
     Dates: start: 20050805, end: 20050928
  2. PRIALT [Suspect]
     Indication: PAIN
     Dosage: INTRATHECAL ; 0.3 UG, ONCE/HOUR, INTRATHECAL
     Route: 037
     Dates: start: 20050928, end: 20051005
  3. ROXICODONE [Concomitant]
  4. OXYCODONE HCL [Concomitant]
  5. SOMA [Concomitant]
  6. ACEON [Concomitant]
  7. CLONIDINE [Concomitant]
  8. DILAUDID [Concomitant]
  9. FLORICET (BUTALBITAL, CAFFEINE, PARACETAMOL) [Concomitant]

REACTIONS (24)
  - BACK PAIN [None]
  - CHILLS [None]
  - CONDITION AGGRAVATED [None]
  - DECREASED ACTIVITY [None]
  - DECREASED APPETITE [None]
  - DEHYDRATION [None]
  - DIZZINESS [None]
  - DRUG WITHDRAWAL SYNDROME [None]
  - DYSGEUSIA [None]
  - HANGOVER [None]
  - HEADACHE [None]
  - HOT FLUSH [None]
  - HYPERHIDROSIS [None]
  - HYPOAESTHESIA [None]
  - INSOMNIA [None]
  - MUSCLE SPASMS [None]
  - MUSCLE TIGHTNESS [None]
  - MUSCULOSKELETAL STIFFNESS [None]
  - NAUSEA [None]
  - PAIN [None]
  - PAIN IN EXTREMITY [None]
  - TEMPERATURE INTOLERANCE [None]
  - TREMOR [None]
  - VOMITING [None]
